FAERS Safety Report 18278921 (Version 2)
Quarter: 2020Q4

REPORT INFORMATION
  Report Type: Spontaneous
  Country: HR (occurrence: HR)
  Receive Date: 20200917
  Receipt Date: 20201001
  Transmission Date: 20210113
  Serious: Yes (Other)
  Sender: FDA-Public Use
  Company Number: HR-MYLANLABS-2020M1078618

PATIENT
  Age: 62 Year
  Sex: Female

DRUGS (5)
  1. FULVESTRANT. [Suspect]
     Active Substance: FULVESTRANT
     Dosage: 500 MILLIGRAM, QD (250 MG, BID (2X 250MG I.M))
     Route: 030
     Dates: start: 201904, end: 201910
  2. PALBOCICLIB                        /08402602/ [Suspect]
     Active Substance: PALBOCICLIB ISETHIONATE
     Indication: BREAST CANCER METASTATIC
     Dosage: UNK
     Route: 065
  3. NOLVADEX                           /00388701/ [Suspect]
     Active Substance: TAMOXIFEN CITRATE
     Indication: BREAST CANCER METASTATIC
     Dosage: 20 MILLIGRAM, QD (10 MG, BID (2 X 10MG TBL P.O.))
     Route: 048
     Dates: start: 202001
  4. TAMOXIFEN [Suspect]
     Active Substance: TAMOXIFEN
     Indication: BREAST CANCER METASTATIC
     Dosage: UNK
     Route: 065
  5. FULVESTRANT. [Suspect]
     Active Substance: FULVESTRANT
     Indication: BREAST CANCER METASTATIC
     Dosage: UNK
     Route: 065

REACTIONS (5)
  - Metastases to bladder [Unknown]
  - Malignant neoplasm progression [Not Recovered/Not Resolved]
  - Metastases to lymph nodes [Unknown]
  - Breast cancer metastatic [Unknown]
  - Metastases to bone [Unknown]

NARRATIVE: CASE EVENT DATE: 201904
